FAERS Safety Report 4569726-3 (Version None)
Quarter: 2005Q1

REPORT INFORMATION
  Report Type: 
  Country: None (occurrence: None)
  Receive Date: 20050131
  Receipt Date: 20050124
  Transmission Date: 20050727
  Serious: No
  Sender: FDA-Public Use
  Company Number: 2005GB00169

PATIENT
  Age: 33 Year
  Sex: Female

DRUGS (1)
  1. LIDOCAINE [Suspect]
     Indication: ANALGESIC EFFECT
     Dosage: 1.5 ML TP
     Route: 061
     Dates: start: 20041213, end: 20041213

REACTIONS (4)
  - ANAESTHETIC COMPLICATION [None]
  - FEELING HOT AND COLD [None]
  - RASH GENERALISED [None]
  - THROAT IRRITATION [None]
